FAERS Safety Report 7374941-X (Version None)
Quarter: 2011Q1

REPORT INFORMATION
  Report Type: 
  Country: None (occurrence: None)
  Receive Date: 20110325
  Receipt Date: 20110311
  Transmission Date: 20110831
  Serious: Yes (Hospitalization)
  Sender: FDA-Public Use
  Company Number: PHHO2011US04636

PATIENT
  Sex: Male

DRUGS (3)
  1. CISPLATIN [Suspect]
     Indication: HEAD AND NECK CANCER
  2. DOCETAXEL [Suspect]
     Indication: HEAD AND NECK CANCER
  3. AFINITOR [Suspect]
     Indication: HEAD AND NECK CANCER
     Dosage: 10 MG, UNK
     Route: 048
     Dates: start: 20110303, end: 20110304

REACTIONS (1)
  - FEBRILE NEUTROPENIA [None]
